FAERS Safety Report 9679316 (Version 1)
Quarter: 2013Q4

REPORT INFORMATION
  Report Type: Spontaneous
  Country: US (occurrence: US)
  Receive Date: 20131109
  Receipt Date: 20131109
  Transmission Date: 20140711
  Serious: No
  Sender: FDA-Public Use
  Company Number: US-SANOFI-AVENTIS-2012SA090996

PATIENT
  Age: 73 Year
  Sex: Female

DRUGS (4)
  1. ALLEGRA-D, 24 HR [Suspect]
     Indication: SINUSITIS
     Route: 065
  2. ALLEGRA [Concomitant]
  3. LISINOPRIL [Concomitant]
  4. HYDROCHLOROTHIAZIDE [Concomitant]

REACTIONS (3)
  - Blood pressure increased [Not Recovered/Not Resolved]
  - Overdose [Not Recovered/Not Resolved]
  - Heart rate irregular [Not Recovered/Not Resolved]
